FAERS Safety Report 25378470 (Version 6)
Quarter: 2025Q3

REPORT INFORMATION
  Report Type: Report from Study
  Country: IN (occurrence: IN)
  Receive Date: 20250530
  Receipt Date: 20250924
  Transmission Date: 20251020
  Serious: Yes (Hospitalization)
  Sender: ROCHE
  Company Number: IN-ROCHE-10000286945

PATIENT
  Age: 76 Year
  Sex: Female
  Weight: 52 kg

DRUGS (2)
  1. POLIVY [Suspect]
     Active Substance: POLATUZUMAB VEDOTIN-PIIQ
     Indication: Diffuse large B-cell lymphoma
     Route: 065
     Dates: start: 20250519
  2. POLIVY [Suspect]
     Active Substance: POLATUZUMAB VEDOTIN-PIIQ
     Route: 065

REACTIONS (15)
  - Weight decreased [Unknown]
  - Blood pressure increased [Unknown]
  - Swelling [Unknown]
  - Thyroid mass [Unknown]
  - Hypothyroidism [Unknown]
  - Dysphagia [Unknown]
  - Lymphadenopathy [Unknown]
  - Dyspnoea [Unknown]
  - Medical device pain [Not Recovered/Not Resolved]
  - Anxiety [Not Recovered/Not Resolved]
  - Sleep disorder [Not Recovered/Not Resolved]
  - Hallucination [Not Recovered/Not Resolved]
  - Anxiety [Not Recovered/Not Resolved]
  - Insomnia [Not Recovered/Not Resolved]
  - Tooth disorder [Not Recovered/Not Resolved]

NARRATIVE: CASE EVENT DATE: 20250519
